FAERS Safety Report 6175106-X (Version None)
Quarter: 2009Q2

REPORT INFORMATION
  Report Type: 
  Country: None (occurrence: None)
  Receive Date: 20090430
  Receipt Date: 20090304
  Transmission Date: 20091009
  Serious: Yes (Hospitalization)
  Sender: FDA-Public Use
  Company Number: US-ASTRAZENECA-2009UW05838

PATIENT
  Sex: Female
  Weight: 67.1 kg

DRUGS (4)
  1. NEXIUM [Suspect]
     Route: 048
  2. NEXIUM [Suspect]
     Route: 048
  3. LYRICA [Concomitant]
  4. CLONAPINE [Concomitant]

REACTIONS (1)
  - OESOPHAGEAL ULCER [None]
